FAERS Safety Report 5146870-3 (Version None)
Quarter: 2006Q4

REPORT INFORMATION
  Report Type: 
  Country: None (occurrence: None)
  Receive Date: 20061109
  Receipt Date: 20060928
  Transmission Date: 20070319
  Serious: Yes (Death, Life-Threatening)
  Sender: FDA-Public Use
  Company Number: EG-GLAXOSMITHKLINE-B0440399A

PATIENT
  Age: 2 Month
  Sex: Male

DRUGS (3)
  1. FORTUM [Suspect]
     Indication: LOBAR PNEUMONIA
     Dosage: 250MG TWICE PER DAY
     Dates: start: 20060922, end: 20060924
  2. ROCEPHIN [Concomitant]
  3. ZITHROMAX [Concomitant]

REACTIONS (3)
  - DEATH [None]
  - PNEUMONIA [None]
  - RESPIRATORY FAILURE [None]
